FAERS Safety Report 18644875 (Version 3)
Quarter: 2021Q4

REPORT INFORMATION
  Report Type: Spontaneous
  Country: CZ (occurrence: CZ)
  Receive Date: 20201221
  Receipt Date: 20211108
  Transmission Date: 20220303
  Serious: Yes (Hospitalization, Other)
  Sender: FDA-Public Use
  Company Number: CZ-ZENTIVA-2020-ZT-032324

PATIENT
  Age: 86 Year
  Sex: Female

DRUGS (79)
  1. PANTOPRAZOLE [Interacting]
     Active Substance: PANTOPRAZOLE
     Indication: Product used for unknown indication
     Dosage: 20 MILLIGRAM, QD (1-0-0)
     Route: 048
  2. AMIODARONE [Interacting]
     Active Substance: AMIODARONE
     Indication: Product used for unknown indication
     Dosage: 200 MILLIGRAM, QD
     Route: 048
  3. MELOXICAM [Suspect]
     Active Substance: MELOXICAM
     Indication: Post herpetic neuralgia
     Dosage: 15 MILLIGRAM, QW (1 TBL IF PAIN, APP. 3 TIMES A WEEK)
     Route: 048
     Dates: start: 2015
  4. FENTANYL [Suspect]
     Active Substance: FENTANYL
     Indication: Product used for unknown indication
     Dosage: 25 MICROGRAM, QH (25 UG/H EVERY 72 HODIN))
     Route: 062
     Dates: start: 2015
  5. METHOTREXATE [Interacting]
     Active Substance: METHOTREXATE
     Indication: Rheumatoid arthritis
     Dosage: 10 MILLIGRAM, QW (1-0-0 ON SUNDAY)
     Route: 048
  6. FOLIC ACID [Suspect]
     Active Substance: FOLIC ACID
     Indication: Product used for unknown indication
     Dosage: 1 DOSAGE FORM, QW (1-0-0 ON MONDAY)
     Route: 048
  7. ROSUVASTATIN CALCIUM [Interacting]
     Active Substance: ROSUVASTATIN CALCIUM
     Indication: Product used for unknown indication
     Dosage: 20 MILLIGRAM, QD
     Route: 048
  8. AMLODIPINE BESYLATE [Interacting]
     Active Substance: AMLODIPINE BESYLATE
     Indication: Hypertension
     Dosage: 5 MILLIGRAM, QD (1-0-0)
     Route: 048
  9. SODIUM CHONDROITIN SULFATE [Suspect]
     Active Substance: SODIUM CHONDROITIN SULFATE
     Indication: Product used for unknown indication
     Dosage: 800 MILLIGRAM, QD (0-0-1)
     Route: 048
  10. METAMIZOLE [Suspect]
     Active Substance: METAMIZOLE
     Indication: Product used for unknown indication
     Dosage: 500 MILLIGRAM, QD (1-0-1)
     Route: 048
     Dates: start: 2015
  11. SODIUM PICOSULFATE [Suspect]
     Active Substance: SODIUM PICOSULFATE
     Indication: Product used for unknown indication
     Dosage: UNK (10-20 GTT IN THE EVENING), DROPS
     Route: 048
  12. ACETAMINOPHEN [Suspect]
     Active Substance: ACETAMINOPHEN
     Indication: Product used for unknown indication
     Dosage: 750 MILLIGRAM, QD (1.5 TABLETS 3-4 TIMES A DAY)
     Route: 048
     Dates: start: 2015
  13. PREDNISONE [Concomitant]
     Active Substance: PREDNISONE
     Indication: Steroid therapy
     Dosage: 5 MILLIGRAM, QD (1-0-0)
     Route: 048
  14. LEVOTHYROXINE [Concomitant]
     Active Substance: LEVOTHYROXINE
     Indication: Autoimmune thyroiditis
     Dosage: 100 MICROGRAM, QD (1-0-0)
     Route: 048
  15. LEVOTHYROXINE [Concomitant]
     Active Substance: LEVOTHYROXINE
     Dosage: 100 MICROGRAM, QD
     Route: 065
  16. APIXABAN [Concomitant]
     Active Substance: APIXABAN
     Dosage: 5 MILLIGRAM, QD
     Route: 048
  17. METOPROLOL [Concomitant]
     Active Substance: METOPROLOL
     Dosage: 25 MILLIGRAM, QD (1-0-0)
     Route: 048
  18. TELMISARTAN [Interacting]
     Active Substance: TELMISARTAN
     Indication: Product used for unknown indication
     Dosage: 1 DOSAGE FORM, QD
     Route: 065
  19. PANADOL [Interacting]
     Active Substance: ACETAMINOPHEN
     Indication: Pain
     Dosage: 1.5 DOSAGE FORM, 750 MG DAILY (1.5 TABLETS 3-4 TIMES A DAY)
     Route: 065
  20. NICOFURANOSE [Interacting]
     Active Substance: NICOFURANOSE
     Indication: Product used for unknown indication
     Dosage: UNK, QD
     Route: 065
  21. MELOXICAM [Interacting]
     Active Substance: MELOXICAM
     Indication: Pain
     Dosage: 15 MILLIGRAM
     Route: 048
  22. FENTANYL [Interacting]
     Active Substance: FENTANYL
     Indication: Pain
     Dosage: 25 MICROGRAM, FOR 72 HOURS
     Route: 062
  23. NOVALGIN (METAMIZOLE SODIUM) [Interacting]
     Active Substance: METAMIZOLE SODIUM
     Indication: Product used for unknown indication
     Dosage: 500 MILLIGRAM, BID
     Route: 065
  24. METOPROLOL SUCCINATE [Interacting]
     Active Substance: METOPROLOL SUCCINATE
     Indication: Hypertension
     Dosage: 25 MILLIGRAM, QD
     Route: 065
  25. EUTHYROX [Interacting]
     Active Substance: LEVOTHYROXINE SODIUM
     Indication: Product used for unknown indication
     Dosage: 100 MICROGRAM, QD
     Route: 065
  26. SODIUM PICOSULFATE [Interacting]
     Active Substance: SODIUM PICOSULFATE
     Indication: Constipation
     Dosage: UNK (10-20 GTT IN THE EVENING)
     Route: 065
  27. FOLIC ACID [Interacting]
     Active Substance: FOLIC ACID
     Indication: Product used for unknown indication
     Dosage: UNK UNK, QW
     Route: 065
  28. ELIQUIS [Interacting]
     Active Substance: APIXABAN
     Indication: Product used for unknown indication
     Dosage: 5 MILLIGRAM, BID
     Route: 065
  29. CALCIUM\CHOLECALCIFEROL [Interacting]
     Active Substance: CALCIUM\CHOLECALCIFEROL
     Indication: Calcium deficiency
     Dosage: UNK UNK, QD
     Route: 065
  30. PREDNISONE [Interacting]
     Active Substance: PREDNISONE
     Indication: Steroid therapy
     Dosage: 5 MILLIGRAM, QD
     Route: 065
  31. PREDNISONE [Interacting]
     Active Substance: PREDNISONE
     Dosage: UNK UNK, QD
     Route: 065
  32. PREDNISONE [Interacting]
     Active Substance: PREDNISONE
     Dosage: UNK UNK, QD, 2-0-0
     Route: 065
  33. CALCIUM\CHOLECALCIFEROL [Suspect]
     Active Substance: CALCIUM\CHOLECALCIFEROL
     Indication: Calcium deficiency
     Dosage: UNK
     Route: 065
  34. AMLODIPINE BESYLATE [Interacting]
     Active Substance: AMLODIPINE BESYLATE
     Indication: Hypertension
     Dosage: UNK
  35. MELOXICAM [Interacting]
     Active Substance: MELOXICAM
     Indication: Post herpetic neuralgia
     Dosage: 1 DOSAGE FORM, QW, 1 DOSAGE FORM, QWK
     Route: 048
     Dates: start: 2015
  36. MELOXICAM [Interacting]
     Active Substance: MELOXICAM
     Indication: Pain
     Dosage: 15 MILLIGRAM, 15 MILLIGRAM, TAKEN APPROXIMATELY 3 TIMES PER WEEK
  37. PREGABALIN [Suspect]
     Active Substance: PREGABALIN
     Indication: Post herpetic neuralgia
     Dosage: UNK
     Route: 065
  38. METHOTREXATE SODIUM [Interacting]
     Active Substance: METHOTREXATE SODIUM
     Indication: Rheumatoid arthritis
     Dosage: 10 MILLIGRAM, QW
     Route: 065
     Dates: start: 2010
  39. CORDARONE [Interacting]
     Active Substance: AMIODARONE HYDROCHLORIDE
     Indication: Atrial fibrillation
     Dosage: 200 MILLIGRAM, QD
     Route: 048
  40. ROSUVASTATIN CALCIUM [Interacting]
     Active Substance: ROSUVASTATIN CALCIUM
     Indication: Product used for unknown indication
     Dosage: UNK
  41. SODIUM PICOSULFATE [Interacting]
     Active Substance: SODIUM PICOSULFATE
     Indication: Constipation
     Dosage: UNK
  42. ALPRAZOLAM [Interacting]
     Active Substance: ALPRAZOLAM
     Indication: Product used for unknown indication
     Dosage: UNK
     Route: 065
  43. EUTHYROX [Interacting]
     Active Substance: LEVOTHYROXINE SODIUM
     Indication: Autoimmune thyroiditis
     Dosage: UNK
  44. ROSUVASTATIN [Interacting]
     Active Substance: ROSUVASTATIN
     Indication: Product used for unknown indication
     Dosage: 20 MILLIGRAM
     Route: 065
  45. METAMIZOLE [Interacting]
     Active Substance: METAMIZOLE
     Indication: Neuralgia
     Dosage: 1000 MILLIGRAM, QD
     Route: 048
     Dates: start: 2015
  46. METAMIZOLE [Interacting]
     Active Substance: METAMIZOLE
     Indication: Hypertension
     Dosage: UNK
     Route: 065
  47. METAMIZOLE [Interacting]
     Active Substance: METAMIZOLE
     Indication: Post herpetic neuralgia
  48. FENTANYL [Interacting]
     Active Substance: FENTANYL
     Indication: Post herpetic neuralgia
     Dosage: 25 MICROGRAM
     Route: 062
     Dates: start: 2015
  49. FENTANYL [Interacting]
     Active Substance: FENTANYL
     Indication: Pain
     Dosage: UNK
     Route: 065
  50. NICOFURANOSE [Interacting]
     Active Substance: NICOFURANOSE
     Indication: Encephalopathy
     Dosage: UNK
     Route: 048
  51. PANTOPRAZOLE [Suspect]
     Active Substance: PANTOPRAZOLE
     Indication: Nausea
     Dosage: 20 MILLIGRAM
     Route: 065
  52. PANTOPRAZOLE [Suspect]
     Active Substance: PANTOPRAZOLE
     Dosage: 10 MILLIGRAM
     Route: 048
  53. TRAZODONE [Interacting]
     Active Substance: TRAZODONE HYDROCHLORIDE
     Indication: Product used for unknown indication
     Dosage: UNK
     Route: 065
  54. ACETAMINOPHEN [Interacting]
     Active Substance: ACETAMINOPHEN
     Indication: Pain
     Dosage: UNK
     Route: 065
  55. ACETAMINOPHEN [Interacting]
     Active Substance: ACETAMINOPHEN
     Dosage: UNK
     Route: 065
  56. TELMISARTAN [Interacting]
     Active Substance: TELMISARTAN
     Indication: Hypertension
     Dosage: 1 DOSAGE FORM, QD
     Route: 048
  57. TELMISARTAN [Interacting]
     Active Substance: TELMISARTAN
     Dosage: UNK
     Route: 048
  58. RAMIPRIL [Interacting]
     Active Substance: RAMIPRIL
     Indication: Product used for unknown indication
     Dosage: UNK
     Route: 065
  59. METOPROLOL TARTRATE [Interacting]
     Active Substance: METOPROLOL TARTRATE
     Indication: Product used for unknown indication
     Dosage: 25 MILLIGRAM, QD
     Route: 065
  60. NOVALGIN (METAMIZOLE SODIUM) [Suspect]
     Active Substance: METAMIZOLE SODIUM
     Indication: Post herpetic neuralgia
     Dosage: 1000 MILLIGRAM, QD
     Route: 065
  61. NOVALGIN (METAMIZOLE SODIUM) [Suspect]
     Active Substance: METAMIZOLE SODIUM
     Indication: Hypertension
  62. POTASSIUM ASPARTATE [Interacting]
     Active Substance: POTASSIUM ASPARTATE
     Indication: Product used for unknown indication
     Dosage: UNK
     Route: 065
  63. POTASSIUM ASPARTATE [Interacting]
     Active Substance: POTASSIUM ASPARTATE
     Dosage: UNK
     Route: 065
  64. CAPTOPRIL [Suspect]
     Active Substance: CAPTOPRIL
     Indication: Hypertension
     Dosage: UNK
  65. ZOLPIDEM TARTRATE [Interacting]
     Active Substance: ZOLPIDEM TARTRATE
     Indication: Product used for unknown indication
     Dosage: UNK
  66. TRAMADOL [Suspect]
     Active Substance: TRAMADOL
     Indication: Product used for unknown indication
     Dosage: UNK
     Route: 048
  67. OXAZEPAM [Interacting]
     Active Substance: OXAZEPAM
     Indication: Product used for unknown indication
     Dosage: UNK
  68. ZOLPIDEM TARTRATE [Interacting]
     Active Substance: ZOLPIDEM TARTRATE
     Indication: Product used for unknown indication
     Dosage: UNK, OVERUSED
  69. ZOLPIDEM TARTRATE [Interacting]
     Active Substance: ZOLPIDEM TARTRATE
     Dosage: UNK, OVERUSED
  70. PANTOPRAZOLE [Suspect]
     Active Substance: PANTOPRAZOLE
     Indication: Nausea
     Dosage: UNK
  71. TELMISARTAN [Suspect]
     Active Substance: TELMISARTAN
     Indication: Product used for unknown indication
     Dosage: UNK
     Route: 048
  72. OMEPRAZOLE [Suspect]
     Active Substance: OMEPRAZOLE
     Indication: Product used for unknown indication
     Dosage: UNK
  73. METOPROLOL [Suspect]
     Active Substance: METOPROLOL
     Indication: Hypertension
     Dosage: 25 MILLIGRAM
     Route: 048
  74. SODIUM CHONDROITIN SULFATE [Suspect]
     Active Substance: SODIUM CHONDROITIN SULFATE
     Indication: Rheumatoid arthritis
     Dosage: 800 MILLIGRAM, QD
     Route: 048
  75. SODIUM CHONDROITIN SULFATE [Suspect]
     Active Substance: SODIUM CHONDROITIN SULFATE
     Indication: Constipation
  76. IBUPROFEN [Suspect]
     Active Substance: IBUPROFEN
     Indication: Pain
     Dosage: UNK
  77. GUAIFENESIN [Suspect]
     Active Substance: GUAIFENESIN
     Indication: Product used for unknown indication
     Dosage: UNK
  78. DONEPEZIL HYDROCHLORIDE [Suspect]
     Active Substance: DONEPEZIL HYDROCHLORIDE
     Indication: Product used for unknown indication
     Dosage: UNK
  79. ELIQUIS [Interacting]
     Active Substance: APIXABAN
     Indication: Anticoagulant therapy
     Dosage: 10 MILLIGRAM, 5 MILLIGRAM, BID

REACTIONS (46)
  - Atrial fibrillation [Recovered/Resolved]
  - Immobile [Recovered/Resolved]
  - Hypokalaemia [Recovered/Resolved]
  - Urinary retention [Recovered/Resolved]
  - Cerebral atrophy [Recovered/Resolved]
  - Delirium [Recovered/Resolved]
  - Multiple drug therapy [Recovered/Resolved]
  - Vertigo [Recovered/Resolved]
  - Head discomfort [Recovered/Resolved]
  - Hepatic enzyme increased [Recovered/Resolved]
  - Oxygen saturation decreased [Recovered/Resolved]
  - Cognitive disorder [Recovered/Resolved]
  - Apathy [Recovered/Resolved]
  - Anxiety [Recovered/Resolved]
  - Condition aggravated [Recovered/Resolved]
  - Hypertension [Recovering/Resolving]
  - Confusional state [Recovered/Resolved]
  - Discomfort [Recovered/Resolved]
  - Nausea [Recovered/Resolved]
  - Hyponatraemia [Recovered/Resolved]
  - Encephalopathy [Recovering/Resolving]
  - General physical health deterioration [Recovering/Resolving]
  - Drug interaction [Recovered/Resolved]
  - Medication error [Recovered/Resolved]
  - Poor quality sleep [Recovered/Resolved]
  - Foreign body [Recovered/Resolved]
  - Sleep disorder [Recovering/Resolving]
  - Bedridden [Recovered/Resolved]
  - Dehydration [Recovered/Resolved]
  - Mood swings [Recovered/Resolved]
  - Affect lability [Recovered/Resolved]
  - Mobility decreased [Recovered/Resolved]
  - Listless [Recovering/Resolving]
  - Overdose [Recovered/Resolved]
  - Incorrect dose administered [Unknown]
  - Reduced facial expression [Recovered/Resolved]
  - Hypoacusis [Recovered/Resolved]
  - Prescription drug used without a prescription [Unknown]
  - Fracture [Recovered/Resolved]
  - Loss of personal independence in daily activities [Recovered/Resolved]
  - Pelvic fracture [Recovered/Resolved]
  - Dizziness [Recovered/Resolved]
  - Contusion [Recovered/Resolved]
  - Fall [Recovering/Resolving]
  - Restlessness [Recovered/Resolved]
  - Drug abuse [Unknown]

NARRATIVE: CASE EVENT DATE: 20180101
